FAERS Safety Report 16091600 (Version 1)
Quarter: 2019Q1

REPORT INFORMATION
  Report Type: Report from Study
  Country: US (occurrence: US)
  Receive Date: 20190319
  Receipt Date: 20190319
  Transmission Date: 20190418
  Serious: No
  Sender: FDA-Public Use
  Company Number: US-REGENERON PHARMACEUTICALS, INC.-2018-42053

PATIENT

DRUGS (1)
  1. RILONACEPT [Suspect]
     Active Substance: RILONACEPT
     Indication: JUVENILE IDIOPATHIC ARTHRITIS
     Dosage: 30 MG, EVERY WEEK
     Route: 058
     Dates: start: 20180219

REACTIONS (2)
  - Pain [Unknown]
  - Off label use [Unknown]
